FAERS Safety Report 17945281 (Version 1)
Quarter: 2020Q2

REPORT INFORMATION
  Report Type: Spontaneous
  Country: US (occurrence: US)
  Receive Date: 20200625
  Receipt Date: 20200625
  Transmission Date: 20200714
  Serious: No
  Sender: FDA-Public Use
  Company Number: US-CADILA HEALTHCARE LIMITED-US-ZYDUS-037205

PATIENT

DRUGS (1)
  1. TAMSULOSIN [Suspect]
     Active Substance: TAMSULOSIN
     Indication: MICTURITION URGENCY
     Dosage: .4 MILLIGRAM,FREQUENCY :ONCE DAILY WITH EVENING MEAL
     Route: 048
     Dates: start: 20190513, end: 20190514

REACTIONS (3)
  - Abdominal discomfort [Recovered/Resolved]
  - Product use in unapproved indication [Recovered/Resolved]
  - Product administration error [Recovered/Resolved]

NARRATIVE: CASE EVENT DATE: 20190513
